FAERS Safety Report 12546698 (Version 2)
Quarter: 2016Q3

REPORT INFORMATION
  Report Type: Spontaneous
  Country: CN (occurrence: CN)
  Receive Date: 20160711
  Receipt Date: 20160721
  Transmission Date: 20161109
  Serious: Yes (Other)
  Sender: FDA-Public Use
  Company Number: CN-GLAXOSMITHKLINE-CN2016GSK096864

PATIENT
  Age: 43 Year
  Sex: Female
  Weight: 77.5 kg

DRUGS (4)
  1. SERETIDE [Suspect]
     Active Substance: FLUTICASONE PROPIONATE\SALMETEROL XINAFOATE
     Indication: ASTHMA
     Dosage: 1 PUFF(S), BID
     Route: 055
  2. SERETIDE [Suspect]
     Active Substance: FLUTICASONE PROPIONATE\SALMETEROL XINAFOATE
     Dosage: 1 PUFF(S), QD
  3. COMPOUND GLYCYRRHIZIN TABLETS [Suspect]
     Active Substance: GLYCYRRHIZIN
     Indication: SKIN DISORDER
     Dosage: UNK
     Dates: start: 2014, end: 2015
  4. SERETIDE [Suspect]
     Active Substance: FLUTICASONE PROPIONATE\SALMETEROL XINAFOATE
     Dosage: 1 PUFF(S), QD

REACTIONS (8)
  - Acne [Not Recovered/Not Resolved]
  - Sputum increased [Not Recovered/Not Resolved]
  - Weight increased [Not Recovered/Not Resolved]
  - Exophthalmos [Not Recovered/Not Resolved]
  - Expired product administered [Unknown]
  - Renal impairment [Recovered/Resolved]
  - Intentional product misuse [Unknown]
  - Hepatic function abnormal [Recovered/Resolved]
